FAERS Safety Report 5726963-X (Version None)
Quarter: 2008Q2

REPORT INFORMATION
  Report Type: 
  Country: None (occurrence: None)
  Receive Date: 20080501
  Receipt Date: 20070405
  Transmission Date: 20081010
  Serious: Yes (Hospitalization)
  Sender: FDA-Public Use
  Company Number: PHEH2007US04491

PATIENT

DRUGS (1)
  1. DIOVAN HCT [Suspect]

REACTIONS (1)
  - HYPONATRAEMIA [None]
